FAERS Safety Report 10204097 (Version 2)
Quarter: 2014Q2

REPORT INFORMATION
  Report Type: Report from Study
  Country: DE (occurrence: DE)
  Receive Date: 20140529
  Receipt Date: 20140613
  Transmission Date: 20141212
  Serious: Yes (Hospitalization)
  Sender: FDA-Public Use
  Company Number: DE-NOVOPROD-411355

PATIENT
  Age: 11 Year
  Sex: Female
  Weight: 47.2 kg

DRUGS (1)
  1. NORDITROPIN FLEXPRO 10 MG/ML [Suspect]
     Indication: TURNER^S SYNDROME
     Dosage: DAILY DOSE: 1.8
     Route: 058
     Dates: start: 20130718

REACTIONS (1)
  - Epiphysiolysis [Recovered/Resolved]
